FAERS Safety Report 7765405-X (Version None)
Quarter: 2011Q3

REPORT INFORMATION
  Report Type: 
  Country: None (occurrence: None)
  Receive Date: 20110921
  Receipt Date: 20110915
  Transmission Date: 20111222
  Serious: Yes (Life-Threatening)
  Sender: FDA-Public Use
  Company Number: US-MERCK-1109USA01600

PATIENT
  Age: 78 Year
  Sex: Male

DRUGS (5)
  1. JALYN [Concomitant]
     Route: 065
  2. CARBIDOPA + LEVODOPA [Suspect]
     Route: 048
     Dates: start: 20060101, end: 20110901
  3. SINEMET [Suspect]
     Dosage: 8 TABLETS DAILY
     Route: 048
     Dates: start: 19960101, end: 20060101
  4. SINEMET [Suspect]
     Route: 048
     Dates: start: 20110901
  5. VESICARE [Concomitant]
     Route: 065

REACTIONS (3)
  - WHITE BLOOD CELL COUNT DECREASED [None]
  - ANAEMIA [None]
  - PLATELET COUNT DECREASED [None]
